FAERS Safety Report 5565531-X (Version None)
Quarter: 2007Q4

REPORT INFORMATION
  Report Type: 
  Country: None (occurrence: None)
  Receive Date: 20071218
  Receipt Date: 20050526
  Transmission Date: 20080405
  Serious: Yes (Death)
  Sender: FDA-Public Use
  Company Number: US-ROCHE-406209

PATIENT
  Age: 51 Year
  Sex: Male
  Weight: 77.1 kg

DRUGS (2)
  1. PEGASYS [Suspect]
     Route: 058
     Dates: start: 20041208
  2. COPEGUS [Suspect]
     Route: 048
     Dates: start: 20041208

REACTIONS (4)
  - ANOREXIA [None]
  - DRUG ABUSE [None]
  - HEAD INJURY [None]
  - NAUSEA [None]
